FAERS Safety Report 12824511 (Version 2)
Quarter: 2016Q4

REPORT INFORMATION
  Report Type: Report from Study
  Country: DE (occurrence: DE)
  Receive Date: 20161006
  Receipt Date: 20161021
  Transmission Date: 20170207
  Serious: Yes (Hospitalization)
  Sender: FDA-Public Use
  Company Number: DE-B.I. PHARMACEUTICALS,INC./RIDGEFIELD-2016-BI-36748BI

PATIENT
  Age: 75 Year
  Sex: Male
  Weight: 95 kg

DRUGS (2)
  1. AMIODARON [Concomitant]
     Active Substance: AMIODARONE
     Indication: ATRIAL FIBRILLATION
     Route: 065
     Dates: start: 20160627
  2. DABIGATRAN [Suspect]
     Active Substance: DABIGATRAN
     Indication: ATRIAL FIBRILLATION
     Route: 048
     Dates: start: 20150924, end: 201609

REACTIONS (2)
  - Dyspnoea exertional [Recovered/Resolved]
  - Cardiac ablation [Recovered/Resolved]

NARRATIVE: CASE EVENT DATE: 20160606
